FAERS Safety Report 23551665 (Version 1)
Quarter: 2024Q1

REPORT INFORMATION
  Report Type: Report from Study
  Country: IT (occurrence: IT)
  Receive Date: 20240222
  Receipt Date: 20240222
  Transmission Date: 20240409
  Serious: Yes (Hospitalization)
  Sender: FDA-Public Use
  Company Number: None

PATIENT
  Age: 80 Year
  Sex: Male

DRUGS (2)
  1. LEVOFLOXACIN [Suspect]
     Active Substance: LEVOFLOXACIN
     Indication: Bacterial infection
     Dosage: TIME INTERVAL: CYCLICAL: DOSAGE: 1 UNIT OF MEASUREMENT: DOSAGE UNIT ADMINISTRATION FREQUENCY: CYC...
     Route: 048
     Dates: start: 20231207
  2. CLARITHROMYCIN [Suspect]
     Active Substance: CLARITHROMYCIN
     Indication: Bacterial infection
     Dosage: TIME INTERVAL: CYCLICAL: DOSAGE: 1?UNIT OF MEASUREMENT: DOSAGE UNIT?ADMINISTRATION FREQUENCY: CYC...
     Route: 048
     Dates: start: 20231207

REACTIONS (2)
  - Face oedema [Recovering/Resolving]
  - Lip oedema [Recovering/Resolving]

NARRATIVE: CASE EVENT DATE: 20231217
